FAERS Safety Report 24812092 (Version 1)
Quarter: 2025Q1

REPORT INFORMATION
  Report Type: Spontaneous
  Country: US (occurrence: US)
  Receive Date: 20250106
  Receipt Date: 20250106
  Transmission Date: 20250409
  Serious: No
  Sender: MILLICENT HOLDINGS
  Company Number: US-Millicent Holdings Ltd.-MILL20250011

PATIENT
  Sex: Female

DRUGS (2)
  1. FEMRING [Suspect]
     Active Substance: ESTRADIOL ACETATE
     Indication: Menopausal symptoms
     Route: 067
     Dates: start: 20241005, end: 20241227
  2. FEMRING [Suspect]
     Active Substance: ESTRADIOL ACETATE
     Route: 067
     Dates: start: 2006, end: 20241005

REACTIONS (4)
  - Vulvovaginal discomfort [Unknown]
  - Inappropriate schedule of product administration [None]
  - Product colour issue [None]
  - Product odour abnormal [None]

NARRATIVE: CASE EVENT DATE: 20240101
